FAERS Safety Report 5402090-6 (Version None)
Quarter: 2007Q3

REPORT INFORMATION
  Report Type: 
  Country: None (occurrence: None)
  Receive Date: 20070801
  Receipt Date: 20070719
  Transmission Date: 20080115
  Serious: Yes (Hospitalization, Other)
  Sender: FDA-Public Use
  Company Number: SE-JNJFOC-20070704415

PATIENT
  Age: 33 Year
  Sex: Male

DRUGS (5)
  1. REMICADE [Suspect]
     Indication: CROHN'S DISEASE
     Route: 042
  2. METHOTREXATE SODIUM [Suspect]
     Indication: CROHN'S DISEASE
  3. PENTASA [Concomitant]
  4. ENTOCORT EC [Concomitant]
  5. FOLACIN [Concomitant]

REACTIONS (1)
  - RECTAL CANCER [None]
